FAERS Safety Report 25002060 (Version 1)
Quarter: 2025Q1

REPORT INFORMATION
  Report Type: Spontaneous
  Country: US (occurrence: US)
  Receive Date: 20250224
  Receipt Date: 20250224
  Transmission Date: 20250408
  Serious: No
  Sender: Haleon PLC
  Company Number: US-HALEON-2229475

PATIENT
  Age: 78 Year
  Sex: Male

DRUGS (2)
  1. ADVIL DUAL ACTION WITH ACETAMINOPHEN [Suspect]
     Active Substance: ACETAMINOPHEN\IBUPROFEN
     Indication: Pain
     Dates: start: 20250215, end: 20250218
  2. ADVIL TARGETED RELIEF [Suspect]
     Active Substance: CAMPHOR (NATURAL)\CAPSAICIN\MENTHOL\METHYL SALICYLATE
     Indication: Pain
     Dates: start: 20250215, end: 20250218

REACTIONS (3)
  - Nausea [Not Recovered/Not Resolved]
  - Vomiting [Not Recovered/Not Resolved]
  - Drug ineffective [Not Recovered/Not Resolved]

NARRATIVE: CASE EVENT DATE: 20250215
